FAERS Safety Report 9837536 (Version 1)
Quarter: 2014Q1

REPORT INFORMATION
  Report Type: Spontaneous
  Country: US (occurrence: US)
  Receive Date: 20140123
  Receipt Date: 20140123
  Transmission Date: 20141002
  Serious: Yes (Death, Hospitalization, Other)
  Sender: FDA-Public Use
  Company Number: US-PAR PHARMACEUTICAL, INC-2014SCPR008088

PATIENT
  Age: 50 Year
  Sex: Female

DRUGS (4)
  1. DILTIAZEM HCL [Suspect]
     Indication: PRODUCT USED FOR UNKNOWN INDICATION
     Dosage: 14 DF, UNKNOWN
     Route: 048
  2. AMLODIPINE [Suspect]
     Indication: PRODUCT USED FOR UNKNOWN INDICATION
     Dosage: UNK, UNKNOWN
     Route: 048
  3. SIMVASTATIN [Concomitant]
     Indication: PRODUCT USED FOR UNKNOWN INDICATION
     Dosage: UNK, UNKNOWN
     Route: 065
  4. CONJUGATED ESTROGENS [Concomitant]
     Indication: PRODUCT USED FOR UNKNOWN INDICATION
     Dosage: UNK, UNKNOWN
     Route: 065

REACTIONS (9)
  - Death [Fatal]
  - Completed suicide [Fatal]
  - Unresponsive to stimuli [Fatal]
  - Left ventricular dysfunction [Fatal]
  - Bradycardia [Fatal]
  - Hypotension [Fatal]
  - Hyperkalaemia [Fatal]
  - Vomiting [Fatal]
  - Overdose [Fatal]
